FAERS Safety Report 8361234-7 (Version None)
Quarter: 2012Q2

REPORT INFORMATION
  Report Type: 
  Country: None (occurrence: None)
  Receive Date: 20120515
  Receipt Date: 20040723
  Transmission Date: 20120825
  Serious: Yes (Hospitalization)
  Sender: FDA-Public Use
  Company Number: CH-ROCHE-375215

PATIENT
  Age: 57 Year
  Sex: Female

DRUGS (3)
  1. XELODA [Suspect]
     Route: 065
     Dates: start: 20040203, end: 20040209
  2. XELODA [Suspect]
     Indication: BREAST CANCER
     Route: 065
     Dates: start: 20040131, end: 20040202
  3. RENITEN SUBMITE [Concomitant]
     Indication: HYPERTENSION

REACTIONS (11)
  - OEDEMA PERIPHERAL [None]
  - BONE MARROW FAILURE [None]
  - ERYTHEMA [None]
  - RASH [None]
  - FACE OEDEMA [None]
  - NAUSEA [None]
  - PHARYNGITIS [None]
  - SENSORY LOSS [None]
  - STOMATITIS [None]
  - VOMITING [None]
  - DIARRHOEA [None]
